FAERS Safety Report 7018444-0 (Version None)
Quarter: 2010Q3

REPORT INFORMATION
  Report Type: 
  Country: None (occurrence: None)
  Receive Date: 20100924
  Receipt Date: 20100917
  Transmission Date: 20110219
  Serious: Yes (Other)
  Sender: FDA-Public Use
  Company Number: 1000016339

PATIENT
  Age: 67 Year
  Sex: Female

DRUGS (2)
  1. LEVOTHROID [Suspect]
     Indication: HYPOTHYROIDISM
     Dosage: 50 MCG (50 MCG, 1 IN 1 D), ORAL
     Route: 048
     Dates: start: 20040101
  2. CITRACAL (CALCIUM CITRATE) [Concomitant]

REACTIONS (5)
  - CONDITION AGGRAVATED [None]
  - DRUG INEFFECTIVE [None]
  - DYSPHAGIA [None]
  - HYPOTHYROIDISM [None]
  - OESOPHAGEAL DISORDER [None]
